FAERS Safety Report 10069311 (Version 2)
Quarter: 2014Q2

REPORT INFORMATION
  Report Type: Spontaneous
  Country: US (occurrence: US)
  Receive Date: 20140409
  Receipt Date: 20140409
  Transmission Date: 20141212
  Serious: Yes (Death, Other)
  Sender: FDA-Public Use
  Company Number: US-GILEAD-2014-0098864

PATIENT
  Age: 52 Year
  Sex: Female

DRUGS (3)
  1. SOVALDI [Suspect]
     Indication: HEPATITIS C
     Dosage: 400 MG, QD
     Route: 065
     Dates: start: 201402, end: 201403
  2. PEGASYS [Concomitant]
  3. RIBAVIRIN [Concomitant]

REACTIONS (1)
  - Death [Fatal]
